FAERS Safety Report 9369890 (Version 1)
Quarter: 2013Q2

REPORT INFORMATION
  Report Type: Spontaneous
  Country: US (occurrence: None)
  Receive Date: 20130625
  Receipt Date: 20130625
  Transmission Date: 20140414
  Serious: Yes (Hospitalization)
  Sender: FDA-Public Use
  Company Number: None

PATIENT
  Age: 19 Year
  Sex: Male
  Weight: 118 kg

DRUGS (1)
  1. RIVAROXABAN [Suspect]
     Indication: PULMONARY EMBOLISM
     Route: 048
     Dates: start: 20130622, end: 20130622

REACTIONS (9)
  - Haemoglobin decreased [None]
  - Haematocrit decreased [None]
  - Pallor [None]
  - Lethargy [None]
  - Pain in extremity [None]
  - Haematoma [None]
  - Renal impairment [None]
  - Blood creatinine increased [None]
  - Drug level increased [None]
